FAERS Safety Report 14851776 (Version 1)
Quarter: 2018Q2

REPORT INFORMATION
  Report Type: Spontaneous
  Country: US (occurrence: US)
  Receive Date: 20180420
  Receipt Date: 20180420
  Transmission Date: 20180711
  Serious: Yes (Disabling)
  Sender: FDA-Public Use
  Company Number: None

PATIENT
  Age: 75 Year
  Sex: Male
  Weight: 78.75 kg

DRUGS (8)
  1. GLUCOSAMINE HCL [Concomitant]
     Active Substance: GLUCOSAMINE
  2. FINASTERIDE. [Concomitant]
     Active Substance: FINASTERIDE
  3. DEPO-TESTOSTERONE [Concomitant]
     Active Substance: TESTOSTERONE CYPIONATE
  4. VITAMIN C [Concomitant]
     Active Substance: ASCORBIC ACID
  5. RANITIDINE. [Concomitant]
     Active Substance: RANITIDINE
  6. KIRKLAND ATURE MULTI VITAMIN [Concomitant]
  7. MUPIROCIN 2% OIN TEVA [Suspect]
     Active Substance: MUPIROCIN
     Indication: NASAL ULCER
     Dosage: QUANTITY:22 SWAB;?
     Route: 061
     Dates: start: 20180405, end: 20180405
  8. ASPIRIN. [Concomitant]
     Active Substance: ASPIRIN

REACTIONS (3)
  - Dyspnoea [None]
  - Heart rate increased [None]
  - Palpitations [None]

NARRATIVE: CASE EVENT DATE: 20180405
